FAERS Safety Report 6179274-5 (Version None)
Quarter: 2009Q2

REPORT INFORMATION
  Report Type: 
  Country: None (occurrence: None)
  Receive Date: 20090505
  Receipt Date: 20090427
  Transmission Date: 20091009
  Serious: Yes (Other)
  Sender: FDA-Public Use
  Company Number: CN-BAYER-200919296GPV

PATIENT
  Age: 82 Year
  Sex: Male

DRUGS (2)
  1. GLUCOBAY [Suspect]
     Indication: DIABETES MELLITUS
     Dosage: TOTAL DAILY DOSE: 150 MG
     Route: 048
     Dates: start: 20071001
  2. GLUCOBAY [Suspect]
     Dosage: TOTAL DAILY DOSE: 300 MG
     Route: 048
     Dates: start: 20070101

REACTIONS (1)
  - HYPOGLYCAEMIC COMA [None]
